FAERS Safety Report 9249265 (Version 2)
Quarter: 2013Q2

REPORT INFORMATION
  Report Type: Spontaneous
  Country: BR (occurrence: BR)
  Receive Date: 20130423
  Receipt Date: 20130510
  Transmission Date: 20140414
  Serious: Yes (Hospitalization, Other)
  Sender: FDA-Public Use
  Company Number: BR-ELI_LILLY_AND_COMPANY-BR201304003642

PATIENT
  Age: 67 Year
  Sex: Male
  Weight: 80 kg

DRUGS (8)
  1. HUMULIN NPH [Suspect]
     Indication: DIABETES MELLITUS
     Dosage: 20 IU, QID
     Route: 058
  2. HUMULIN REGULAR [Suspect]
     Indication: DIABETES MELLITUS
     Dosage: 20 IU, BID
     Route: 058
  3. MALEATO DE ENALAPRIL [Concomitant]
     Indication: BLOOD PRESSURE
     Dosage: 10 MG, BID
     Route: 065
  4. CARVEDILOL [Concomitant]
     Dosage: 25 MG, BID
     Route: 065
  5. PANTOPRAZOL [Concomitant]
     Dosage: UNK, UNKNOWN
     Route: 065
  6. VASOGARD [Concomitant]
     Indication: BLOOD DISORDER
     Dosage: 50 MG, BID
     Route: 065
  7. SINVASTATINA [Concomitant]
     Indication: FREE FATTY ACIDS ABNORMAL
     Dosage: 20 MG, BID
  8. SINVASTATINA [Concomitant]
     Dosage: 40 MG, EACH EVENING
     Route: 065

REACTIONS (9)
  - Infarction [Recovered/Resolved]
  - Ingrowing nail [Recovering/Resolving]
  - Arterial occlusive disease [Recovered/Resolved]
  - Muscle injury [Recovered/Resolved]
  - Limb injury [Recovered/Resolved]
  - Injection site reaction [Recovered/Resolved]
  - Musculoskeletal stiffness [Recovered/Resolved]
  - Blood glucose fluctuation [Unknown]
  - Influenza [Not Recovered/Not Resolved]
